FAERS Safety Report 9694236 (Version 1)
Quarter: 2013Q4

REPORT INFORMATION
  Report Type: Spontaneous
  Country: US (occurrence: US)
  Receive Date: 20131118
  Receipt Date: 20131118
  Transmission Date: 20140711
  Serious: Yes (Other)
  Sender: FDA-Public Use
  Company Number: US-PFIZER INC-2013327902

PATIENT
  Age: 88 Year
  Sex: Female
  Weight: 47.62 kg

DRUGS (5)
  1. LYRICA [Suspect]
     Indication: SPINAL COLUMN STENOSIS
     Dosage: 25 MG, SINGLE
     Dates: start: 201308, end: 201308
  2. LYRICA [Suspect]
     Indication: DIABETIC NEUROPATHY
  3. LYRICA [Suspect]
     Indication: PARAESTHESIA
  4. LYRICA [Suspect]
     Indication: HYPOAESTHESIA
  5. FIORINAL [Suspect]
     Indication: PAIN
     Dosage: UNK, AS NEEDED

REACTIONS (2)
  - Dyskinesia [Unknown]
  - Drug ineffective [Not Recovered/Not Resolved]
